FAERS Safety Report 8996564 (Version 4)
Quarter: 2013Q1

REPORT INFORMATION
  Report Type: Spontaneous
  Country: US (occurrence: US)
  Receive Date: 20130104
  Receipt Date: 20130221
  Transmission Date: 20140127
  Serious: No
  Sender: FDA-Public Use
  Company Number: US-PFIZER INC-2012332386

PATIENT
  Age: 31 Year
  Sex: Female

DRUGS (3)
  1. INLYTA [Suspect]
     Indication: RENAL CANCER
     Dosage: 5 MG, 2X/DAY
     Dates: start: 20121004
  2. INLYTA [Suspect]
     Dosage: 5 MG, 2X/DAY
     Dates: start: 20121004
  3. INLYTA [Suspect]
     Dosage: 5 MG, 2X/DAY
     Dates: start: 20121004

REACTIONS (11)
  - Nausea [Unknown]
  - Diarrhoea [Unknown]
  - Headache [Unknown]
  - Vomiting [Unknown]
  - Pyrexia [Unknown]
  - Hot flush [Unknown]
  - Night sweats [Unknown]
  - Pain [Unknown]
  - Sinus headache [Unknown]
  - Nasal congestion [Unknown]
  - Ear infection [Unknown]
